FAERS Safety Report 17756449 (Version 1)
Quarter: 2020Q2

REPORT INFORMATION
  Report Type: Spontaneous
  Country: FR (occurrence: FR)
  Receive Date: 20200507
  Receipt Date: 20200507
  Transmission Date: 20200714
  Serious: Yes (Hospitalization)
  Sender: FDA-Public Use
  Company Number: FR-CADILA HEALTHCARE LIMITED-FR-ZYDUS-022675

PATIENT

DRUGS (10)
  1. BROMAZEPAM [Suspect]
     Active Substance: BROMAZEPAM
     Indication: PRODUCT USED FOR UNKNOWN INDICATION
     Route: 048
  2. HYDROCORTISONE. [Concomitant]
     Active Substance: HYDROCORTISONE
     Dosage: 40 MILLIGRAM,(INTERVAL :1 DAYS)
  3. CYAMEMAZINE [Concomitant]
     Active Substance: CYAMEMAZINE
     Dosage: 10 MILLIGRAM,(INTERVAL :1 DAYS)
     Route: 048
  4. SULFARLEM S 25 [Concomitant]
     Dosage: 4 DOSAGE FORM,25 MG COATED TABLET,(INTERVAL :1 DAYS)
     Route: 048
  5. CYAMEMAZINE [Concomitant]
     Active Substance: CYAMEMAZINE
     Dosage: 10 MILLIGRAM,(INTERVAL :1 DAYS)
     Route: 048
  6. PROPRANOLOL [Suspect]
     Active Substance: PROPRANOLOL HYDROCHLORIDE
     Indication: SUICIDE ATTEMPT
     Dosage: 2000 MILLIGRAM,(INTERVAL :1 TOTAL)
     Route: 048
     Dates: start: 20180103, end: 20180103
  7. TRAMADOL. [Suspect]
     Active Substance: TRAMADOL
     Indication: SUICIDE ATTEMPT
     Dosage: 4000 MILLIGRAM,(INTERVAL :1 TOTAL)
     Route: 048
     Dates: start: 20180103, end: 20180103
  8. OMEPRAZOLE. [Concomitant]
     Active Substance: OMEPRAZOLE
     Dosage: 20 MILLIGRAM,(INTERVAL :1 DAYS)
  9. FLUOXETINE [Concomitant]
     Active Substance: FLUOXETINE HYDROCHLORIDE
     Dosage: 1 DOSAGE FORM,(INTERVAL :1 DAYS)
     Route: 048
  10. BROMAZEPAM [Concomitant]
     Active Substance: BROMAZEPAM
     Dosage: 32 MILLIGRAM,(INTERVAL :1 DAYS)
     Route: 048

REACTIONS (4)
  - Altered state of consciousness [Recovered/Resolved]
  - Rhabdomyolysis [Recovered/Resolved]
  - Hypotension [Recovered/Resolved]
  - Peripheral coldness [Recovered/Resolved]

NARRATIVE: CASE EVENT DATE: 20180103
